FAERS Safety Report 6928982-4 (Version None)
Quarter: 2010Q3

REPORT INFORMATION
  Report Type: 
  Country: None (occurrence: None)
  Receive Date: 20100817
  Receipt Date: 20100804
  Transmission Date: 20110219
  Serious: Yes (Hospitalization)
  Sender: FDA-Public Use
  Company Number: ES-ELI_LILLY_AND_COMPANY-ES201008001494

PATIENT
  Sex: Female

DRUGS (7)
  1. FORTEO [Suspect]
     Indication: OSTEOPOROSIS
     Dosage: 20 UG, DAILY (1/D)
     Route: 058
     Dates: start: 20091229
  2. LIXACOL [Concomitant]
     Indication: COLITIS ULCERATIVE
     Dosage: 2 D/F, EVERY 8 HRS
     Route: 048
  3. CLAVERSAL [Concomitant]
     Indication: COLITIS ULCERATIVE
     Dosage: 1 D/F, DAILY (1/D)
     Route: 054
  4. ENALAPRIL [Concomitant]
     Indication: HYPERTENSION
     Dosage: 10 MG, DAILY (1/D)
     Route: 048
  5. SEGURIL [Concomitant]
     Indication: CARDIAC FAILURE
     Dosage: 1 D/F, DAILY (1/D)
     Route: 048
  6. IDAPTAN [Concomitant]
     Indication: CARDIAC FAILURE
     Dosage: 1 D/F, EVERY 8 HRS
     Route: 048
  7. OMEPRAZOLE [Concomitant]
     Indication: PROPHYLAXIS AGAINST GASTROINTESTINAL ULCER
     Dosage: 1 D/F, DAILY (1/D)
     Route: 048

REACTIONS (2)
  - BILE DUCT STONE [None]
  - PANCREATITIS [None]
